FAERS Safety Report 7602236-5 (Version None)
Quarter: 2011Q3

REPORT INFORMATION
  Report Type: 
  Country: None (occurrence: None)
  Receive Date: 20110711
  Receipt Date: 20110630
  Transmission Date: 20111222
  Serious: Yes (Other)
  Sender: FDA-Public Use
  Company Number: US-ASTRAZENECA-2010SE46878

PATIENT
  Age: 56 Year
  Sex: Female

DRUGS (6)
  1. SEROQUEL [Suspect]
     Route: 048
  2. KLONOPIN [Concomitant]
  3. SEROQUEL [Suspect]
     Route: 048
     Dates: start: 20000101
  4. ARIMIDEX [Suspect]
     Route: 048
  5. WELLBUTRIN [Concomitant]
  6. LAMICTAL [Concomitant]

REACTIONS (4)
  - BIPOLAR DISORDER [None]
  - STRESS [None]
  - BREAST CANCER [None]
  - INCORRECT DOSE ADMINISTERED [None]
